FAERS Safety Report 5669966-6 (Version None)
Quarter: 2008Q1

REPORT INFORMATION
  Report Type: 
  Country: None (occurrence: None)
  Receive Date: 20080312
  Receipt Date: 20080302
  Transmission Date: 20080703
  Serious: Yes (Other)
  Sender: FDA-Public Use
  Company Number: 18619

PATIENT
  Age: 57 Year
  Sex: Female

DRUGS (3)
  1. CYTARABINE [Suspect]
     Indication: ACUTE MYELOID LEUKAEMIA
  2. FLUDARABINE [Suspect]
     Indication: ACUTE MYELOID LEUKAEMIA
  3. NEUPOGEN [Suspect]
     Indication: ACUTE MYELOID LEUKAEMIA

REACTIONS (7)
  - ASPERGILLOSIS [None]
  - FACIAL PAIN [None]
  - HEADACHE [None]
  - NASAL CONGESTION [None]
  - NEUTROPENIA [None]
  - SINUSITIS FUNGAL [None]
  - SWELLING FACE [None]
